FAERS Safety Report 25248091 (Version 4)
Quarter: 2025Q4

REPORT INFORMATION
  Report Type: Report from Study
  Country: CA (occurrence: CA)
  Receive Date: 20250429
  Receipt Date: 20251120
  Transmission Date: 20260117
  Serious: Yes (Hospitalization, Other)
  Sender: JOHNSON AND JOHNSON
  Company Number: CA-JNJFOC-20250417210

PATIENT
  Age: 21 Year
  Sex: Female

DRUGS (6)
  1. SIMPONI [Suspect]
     Active Substance: GOLIMUMAB
     Indication: Colitis ulcerative
     Route: 058
     Dates: start: 20250426
  2. SIMPONI [Suspect]
     Active Substance: GOLIMUMAB
     Route: 058
     Dates: start: 20250412, end: 20250416
  3. SIMPONI [Suspect]
     Active Substance: GOLIMUMAB
     Route: 058
  4. SIMPONI [Suspect]
     Active Substance: GOLIMUMAB
     Indication: Colitis ulcerative
     Dosage: WEEK 0 INDUCTION DOSE ADMINISTERED AT 4MG/KG
     Route: 041
     Dates: start: 20250412, end: 20250416
  5. SIMPONI [Suspect]
     Active Substance: GOLIMUMAB
     Route: 041
     Dates: start: 20250429
  6. SIMPONI [Suspect]
     Active Substance: GOLIMUMAB
     Route: 041

REACTIONS (3)
  - Bacterial infection [Unknown]
  - Colitis ulcerative [Unknown]
  - Off label use [Unknown]

NARRATIVE: CASE EVENT DATE: 20250412
